FAERS Safety Report 4779911-3 (Version None)
Quarter: 2005Q3

REPORT INFORMATION
  Report Type: 
  Country: None (occurrence: None)
  Receive Date: 20050914
  Receipt Date: 20050426
  Transmission Date: 20060218
  Serious: Yes (Hospitalization)
  Sender: FDA-Public Use
  Company Number: 163-20785-05040513

PATIENT
  Age: 17 Year
  Sex: Female
  Weight: 103.5 kg

DRUGS (15)
  1. THALOMID [Suspect]
     Indication: SYSTEMIC LUPUS ERYTHEMATOSUS
     Dosage: 100 MG, DAILY, ORAL
     Route: 048
     Dates: start: 20050418, end: 20050423
  2. LABETALOL (LABETALOL) (UNKNOWN) [Concomitant]
  3. NIFEDIPINE (NIFEDIPINE) (UNKNOWN) [Concomitant]
  4. ASPIRIN CHEWABLE (ACETYLSALICYLIC ACID) (UNKNOWN) [Concomitant]
  5. NEURONTIN [Concomitant]
  6. FOLIC ACID (FOLIC ACID) (UNKNOWN) [Concomitant]
  7. PREDNISONE [Concomitant]
  8. PEPCID (FAMOTIDINE) (UNKNOWN) [Concomitant]
  9. OS-CAL (OS-CAL) (UNKNOWN) [Concomitant]
  10. COLACE (DOCUSATE SODIUM) (UNKNOWN) [Concomitant]
  11. IBUPROFEN [Concomitant]
  12. PLAQUENIL (HYDROXYCHLOROQUINE PHOSPHATE) (UNKNOWN) [Concomitant]
  13. AZATHIOPRINE (AZATHIOPRINE) (UNKNOWN) [Concomitant]
  14. SOLU-MEDROL (METHYLPREDNISOLONE SODIUM SUCCINATE) (UNKNOWN) [Concomitant]
  15. METHOTREXATE [Concomitant]

REACTIONS (2)
  - CELLULITIS [None]
  - DISEASE PROGRESSION [None]
